FAERS Safety Report 5424792-8 (Version None)
Quarter: 2007Q3

REPORT INFORMATION
  Report Type: 
  Country: None (occurrence: None)
  Receive Date: 20070824
  Receipt Date: 20070815
  Transmission Date: 20080115
  Serious: Yes (Other)
  Sender: FDA-Public Use
  Company Number: US-AMGEN-STX238771

PATIENT
  Sex: Male

DRUGS (6)
  1. ENBREL [Suspect]
     Indication: DRUG USE FOR UNKNOWN INDICATION
     Route: 065
  2. SULFASALAZINE [Concomitant]
     Route: 065
  3. ATACAND [Concomitant]
     Route: 065
  4. UNSPECIFIED MEDICATION [Concomitant]
     Route: 065
  5. VITAMIN CAP [Concomitant]
     Route: 065
  6. TRAVATAN [Concomitant]
     Route: 065

REACTIONS (2)
  - MALIGNANT MELANOMA [None]
  - SQUAMOUS CELL CARCINOMA OF SKIN [None]
